FAERS Safety Report 9240032 (Version 1)
Quarter: 2013Q2

REPORT INFORMATION
  Report Type: Spontaneous
  Country: US (occurrence: US)
  Receive Date: 20130418
  Receipt Date: 20130418
  Transmission Date: 20140414
  Serious: Yes (Hospitalization)
  Sender: FDA-Public Use
  Company Number: US-SANOFI-AVENTIS-2012SA045791

PATIENT
  Age: 73 Year
  Sex: Female
  Weight: 48.2 kg

DRUGS (4)
  1. LOVENOX [Suspect]
  2. ACETYLSALICYLIC ACID [Suspect]
  3. REMODULIN [Suspect]
     Indication: COR PULMONALE CHRONIC
     Dosage: DOSE:14.4 NOT APPLICABLE
     Route: 042
     Dates: start: 20120112
  4. COUMADIN [Suspect]

REACTIONS (2)
  - Gastrointestinal haemorrhage [Unknown]
  - Anaemia [Unknown]
